FAERS Safety Report 6151968-7 (Version None)
Quarter: 2009Q2

REPORT INFORMATION
  Report Type: 
  Country: None (occurrence: None)
  Receive Date: 20090409
  Receipt Date: 20090409
  Transmission Date: 20091009
  Serious: Yes (Hospitalization)
  Sender: FDA-Public Use
  Company Number: None

PATIENT
  Sex: Female
  Weight: 61.6892 kg

DRUGS (1)
  1. XOLAIR [Suspect]
     Indication: ASTHMA
     Dosage: 150 MG MONTHLY SQ
     Route: 058
     Dates: start: 20090318

REACTIONS (4)
  - ASTHMA [None]
  - CONDITION AGGRAVATED [None]
  - TREATMENT FAILURE [None]
  - URTICARIA [None]
